FAERS Safety Report 16747396 (Version 2)
Quarter: 2019Q3

REPORT INFORMATION
  Report Type: Report from Study
  Country: US (occurrence: US)
  Receive Date: 20190827
  Receipt Date: 20190903
  Transmission Date: 20191005
  Serious: Yes (Hospitalization)
  Sender: FDA-Public Use
  Company Number: US-ACTELION-A-US2019-194575

PATIENT
  Age: 6 Year
  Sex: Male

DRUGS (25)
  1. ZAVESCA [Suspect]
     Active Substance: MIGLUSTAT
     Indication: TAY-SACHS DISEASE
  2. CANNABIDIOL [Concomitant]
     Active Substance: CANNABIDIOL
     Dosage: 0.25 ML, BID
     Dates: start: 20170224
  3. MANNITOL. [Concomitant]
     Active Substance: MANNITOL
     Dosage: 315 UNK, TID
     Route: 049
     Dates: start: 20181030
  4. TRIAMCINOLONE [Concomitant]
     Active Substance: TRIAMCINOLONE
     Dosage: 1 UNK
     Route: 061
     Dates: start: 20170224
  5. MIRALAX [Concomitant]
     Active Substance: POLYETHYLENE GLYCOL 3350
     Dosage: 1 CAPFUL , OD
     Route: 049
     Dates: start: 20170224
  6. VITAMIN C [Concomitant]
     Active Substance: ASCORBIC ACID
  7. IBUPROFEN. [Concomitant]
     Active Substance: IBUPROFEN
  8. VITAMIN D3 [Concomitant]
     Active Substance: CHOLECALCIFEROL
     Dosage: 5 ML, OD
     Route: 049
     Dates: start: 20170224
  9. VITAMIN D [Concomitant]
     Active Substance: VITAMIN D NOS
  10. BACLOFEN. [Concomitant]
     Active Substance: BACLOFEN
     Dosage: 1 ML, BID
     Route: 049
     Dates: start: 20170224
  11. TRILEPTAL [Concomitant]
     Active Substance: OXCARBAZEPINE
     Dosage: 1.5 ML, BID
     Route: 048
     Dates: start: 20170224
  12. CALCIUM [Concomitant]
     Active Substance: CALCIUM
  13. MAGNESIUM HYDROXIDE. [Concomitant]
     Active Substance: MAGNESIUM HYDROXIDE
  14. ZAVESCA [Suspect]
     Active Substance: MIGLUSTAT
     Indication: FABRY^S DISEASE
     Dosage: UNK
     Route: 048
     Dates: start: 20190617
  15. SIMETHICONE (DIMETHICONE) [Concomitant]
     Active Substance: DIMETHICONE
  16. VITAMIN B6 [Concomitant]
     Active Substance: PYRIDOXINE HYDROCHLORIDE
     Dosage: UNK, BID
     Route: 049
     Dates: start: 20170224
  17. CULTURELLE [Concomitant]
     Active Substance: LACTOBACILLUS RHAMNOSUS
  18. ALBUTEROL. [Concomitant]
     Active Substance: ALBUTEROL
  19. PYRIDOXINE [Concomitant]
     Active Substance: PYRIDOXINE
  20. OMEPRAZOLE. [Concomitant]
     Active Substance: OMEPRAZOLE
  21. DOCUSATE [Concomitant]
     Active Substance: DOCUSATE
  22. KEPPRA [Concomitant]
     Active Substance: LEVETIRACETAM
     Dosage: 2.8 ML, BID
     Route: 049
     Dates: start: 20170224
  23. HYDROXYZINE [Concomitant]
     Active Substance: HYDROXYZINE HYDROCHLORIDE
  24. DIAZEPAM. [Concomitant]
     Active Substance: DIAZEPAM
  25. OXCARBAZEPINE. [Concomitant]
     Active Substance: OXCARBAZEPINE

REACTIONS (6)
  - Oxygen saturation decreased [Unknown]
  - Respiratory distress [Unknown]
  - Pyrexia [Unknown]
  - Skin laceration [Unknown]
  - Dyspnoea [Unknown]
  - Pneumonia aspiration [Unknown]

NARRATIVE: CASE EVENT DATE: 2019
